FAERS Safety Report 6761702-5 (Version None)
Quarter: 2010Q2

REPORT INFORMATION
  Report Type: 
  Country: None (occurrence: None)
  Receive Date: 20100518
  Receipt Date: 20100506
  Transmission Date: 20101027
  Serious: Yes (Life-Threatening, Hospitalization)
  Sender: FDA-Public Use
  Company Number: AEGBR201000152

PATIENT
  Age: 43 Year
  Sex: Female

DRUGS (3)
  1. IMMUNE GLOBULIN INTRAVENOUS (HUMAN) [Suspect]
     Indication: MULTIFOCAL MOTOR NEUROPATHY
     Dosage: 120 ML; QW; SC, 96 GM; QM; IV, QM; IV
     Route: 042
     Dates: start: 19970101, end: 20070101
  2. IMMUNE GLOBULIN INTRAVENOUS (HUMAN) [Suspect]
     Indication: MULTIFOCAL MOTOR NEUROPATHY
     Dosage: 120 ML; QW; SC, 96 GM; QM; IV, QM; IV
     Route: 042
     Dates: start: 20070101, end: 20070101
  3. IMMUNE GLOBULIN INTRAVENOUS (HUMAN) [Suspect]
     Indication: MULTIFOCAL MOTOR NEUROPATHY
     Dosage: 120 ML; QW; SC, 96 GM; QM; IV, QM; IV
     Route: 042
     Dates: start: 20090301

REACTIONS (5)
  - CONDITION AGGRAVATED [None]
  - MUSCULOSKELETAL DISORDER [None]
  - NEUROMYOPATHY [None]
  - PULMONARY EMBOLISM [None]
  - RESPIRATORY FAILURE [None]
